FAERS Safety Report 9123851 (Version 1)
Quarter: 2013Q1

REPORT INFORMATION
  Report Type: Spontaneous
  Country: US (occurrence: US)
  Receive Date: 20130115
  Receipt Date: 20130115
  Transmission Date: 20140127
  Serious: Yes (Life-Threatening, Other)
  Sender: FDA-Public Use
  Company Number: US-009507513-1301USA003499

PATIENT
  Age: 62 Year
  Sex: Male

DRUGS (5)
  1. SINGULAIR [Suspect]
     Indication: ASTHMA
     Dosage: 10 MG, QD
     Route: 048
  2. NASONEX [Suspect]
  3. XOLAIR [Suspect]
     Dosage: 300 MG, QM
     Route: 058
  4. FLUTICASONE PROPIONATE (+) SALMETEROL XINAFOATE [Suspect]
     Dosage: 2 PUFF TWICE PER DAY
     Route: 055
  5. VENTOLIN (ALBUTEROL) [Suspect]
     Route: 055

REACTIONS (1)
  - Bronchioloalveolar carcinoma [Unknown]
